FAERS Safety Report 4290416-9 (Version None)
Quarter: 2004Q1

REPORT INFORMATION
  Report Type: 
  Country: None (occurrence: None)
  Receive Date: 20040209
  Receipt Date: 20040127
  Transmission Date: 20041129
  Serious: Yes (Death)
  Sender: FDA-Public Use
  Company Number: 2004196809GB

PATIENT
  Age: 14 Year
  Sex: Male
  Weight: 87 kg

DRUGS (16)
  1. GENOTROPIN [Suspect]
     Indication: PRADER-WILLI SYNDROME
     Dosage: 1.4 MG, QD, SUBCUTANEOUS
     Route: 058
     Dates: start: 20020101
  2. FUROSEMIDE [Concomitant]
  3. SPIRONOLACTONE [Concomitant]
  4. DIGOXIN [Concomitant]
  5. METFORMIN HCL [Concomitant]
  6. MAGNESIUM [Concomitant]
  7. GLICLAZIDE (GLICLAZIDE) [Concomitant]
  8. CAPTOPRIL [Concomitant]
  9. SANDOCAL (CALCIUM GLUBIONATE) [Concomitant]
  10. DOPAMINE HCL [Concomitant]
  11. AZITHROMYCIN [Concomitant]
  12. EPINEPHRINE [Concomitant]
  13. MILRINONE (MILRINONE) [Concomitant]
  14. GENTAMICIN [Concomitant]
  15. AMIKACIN [Concomitant]
  16. PIPTAZOBACTAM [Concomitant]

REACTIONS (3)
  - OBSTRUCTIVE AIRWAYS DISORDER [None]
  - RIGHT VENTRICULAR FAILURE [None]
  - UPPER RESPIRATORY TRACT INFECTION [None]
